FAERS Safety Report 9688458 (Version 2)
Quarter: 2013Q4

REPORT INFORMATION
  Report Type: Spontaneous
  Country: ZA (occurrence: ZA)
  Receive Date: 20131114
  Receipt Date: 20131122
  Transmission Date: 20140711
  Serious: Yes (Death)
  Sender: FDA-Public Use
  Company Number: ZA-BAYER-2013-138533

PATIENT
  Age: 47 Year
  Sex: Male

DRUGS (7)
  1. AVELON [Suspect]
     Indication: TUBERCULOSIS
     Dosage: 800 MG, UNK
     Route: 048
     Dates: start: 20130315, end: 20130920
  2. KANAMYCIN [Suspect]
     Indication: TUBERCULOSIS
     Dosage: 840 MG, UNK
     Route: 030
     Dates: start: 20130315, end: 20130920
  3. CLOFAZIMINE [Suspect]
     Indication: TUBERCULOSIS
     Dosage: 100 MG, UNK
     Route: 048
     Dates: start: 20130315, end: 20130920
  4. ETHAMBUTOL [Concomitant]
     Dosage: 1200 MG, UNK
     Dates: start: 20130315, end: 20130920
  5. PYRAZINAMIDE [Concomitant]
     Dosage: 2000 MG, UNK
     Dates: start: 20130315, end: 20130920
  6. LAMIVUDINE [Concomitant]
     Dosage: 150 MG, UNK
     Dates: start: 201011, end: 20130920
  7. EFAVIRENZ [Concomitant]
     Dosage: 600 MG, UNK
     Dates: start: 201011, end: 20130920

REACTIONS (2)
  - Sudden death [Fatal]
  - Vomiting [None]
